FAERS Safety Report 4400709-X (Version None)
Quarter: 2004Q3

REPORT INFORMATION
  Report Type: 
  Country: None (occurrence: None)
  Receive Date: 20040714
  Receipt Date: 20040705
  Transmission Date: 20050211
  Serious: No
  Sender: FDA-Public Use
  Company Number: D01200402373

PATIENT
  Age: 92 Year
  Sex: Male

DRUGS (6)
  1. (FONDAPARINUX) - SOLUTION - UNIT DOSE : UNKNOWN [Suspect]
     Indication: MYOCARDIAL INFARCTION
     Dosage: 2.5 MG QD  SUBCUTANEOUS
     Route: 058
     Dates: start: 20040216, end: 20040219
  2. ASPIRIN [Concomitant]
  3. CLOPIDOGREL [Concomitant]
  4. ZOCOR [Concomitant]
  5. TICLOPIDINE HCL [Concomitant]
  6. METOPROLOL [Concomitant]

REACTIONS (1)
  - CATHETER RELATED COMPLICATION [None]
